FAERS Safety Report 7440140-6 (Version None)
Quarter: 2011Q2

REPORT INFORMATION
  Report Type: 
  Country: None (occurrence: None)
  Receive Date: 20110427
  Receipt Date: 20110418
  Transmission Date: 20111010
  Serious: Yes (Other)
  Sender: FDA-Public Use
  Company Number: CA-ROCHE-771565

PATIENT
  Sex: Female
  Weight: 66.8 kg

DRUGS (8)
  1. TOCILIZUMAB [Suspect]
     Indication: RHEUMATOID ARTHRITIS
     Route: 042
     Dates: start: 20101207, end: 20110411
  2. CALCIUM [Concomitant]
  3. FOLIC ACID [Concomitant]
  4. ACETAMINOPHEN [Concomitant]
     Indication: PAIN
     Route: 048
     Dates: start: 20090201
  5. METHOTREXATE [Concomitant]
     Indication: RHEUMATOID ARTHRITIS
     Route: 048
     Dates: start: 20081201
  6. PLAQUENIL [Concomitant]
     Indication: RHEUMATOID ARTHRITIS
     Route: 048
     Dates: start: 20070501
  7. METHOTREXATE [Concomitant]
     Dosage: DOSE INCREASED
     Route: 048
     Dates: start: 20091126
  8. VITAMIN E + C [Concomitant]

REACTIONS (7)
  - PNEUMONITIS [None]
  - RHEUMATOID ARTHRITIS [None]
  - LOWER RESPIRATORY TRACT INFECTION [None]
  - DRUG INEFFECTIVE [None]
  - DYSPNOEA [None]
  - SINUSITIS [None]
  - MIXED CONNECTIVE TISSUE DISEASE [None]
